FAERS Safety Report 9246652 (Version 1)
Quarter: 2013Q2

REPORT INFORMATION
  Report Type: Other
  Country: GR (occurrence: GR)
  Receive Date: 20130422
  Receipt Date: 20130422
  Transmission Date: 20140414
  Serious: Yes (Death, Hospitalization)
  Sender: FDA-Public Use
  Company Number: GR-ACTELION-A-CH2013-82315

PATIENT
  Age: 23 Year
  Sex: Female

DRUGS (3)
  1. TRACLEER [Suspect]
     Indication: PULMONARY ARTERIAL HYPERTENSION
     Dosage: 125 MG, BID
     Route: 048
  2. TRACLEER [Suspect]
     Dosage: 62.5 MG, BID
     Route: 048
  3. VIAGRA [Concomitant]
     Dosage: 25 MG, BID

REACTIONS (9)
  - Multi-organ failure [Fatal]
  - Cardiac failure [Fatal]
  - Dyspnoea [Fatal]
  - Syncope [Fatal]
  - Pulseless electrical activity [Fatal]
  - Sepsis [Fatal]
  - Pneumonia klebsiella [Fatal]
  - Influenza A virus test positive [Fatal]
  - Pyrexia [Unknown]
